FAERS Safety Report 9439912 (Version 1)
Quarter: 2013Q3

REPORT INFORMATION
  Report Type: Spontaneous
  Country: US (occurrence: US)
  Receive Date: 20130805
  Receipt Date: 20130805
  Transmission Date: 20140515
  Serious: No
  Sender: FDA-Public Use
  Company Number: US-BAYER-2013-093041

PATIENT
  Sex: Female
  Weight: 113.38 kg

DRUGS (5)
  1. BETASERON [Suspect]
     Dosage: 0.25 MG, QOD
     Route: 058
  2. ORTHO CYCLEN [Concomitant]
     Dosage: 0.25 UNK, UNK
  3. ZYRTEC [Concomitant]
     Dosage: 10 MG, UNK
  4. CELEXA [Concomitant]
     Dosage: 20 MG, UNK
  5. ASPIRIN [Concomitant]
     Dosage: 81 MG, UNK

REACTIONS (5)
  - Injection site erythema [Unknown]
  - Injection site pruritus [Unknown]
  - Injection site bruising [Unknown]
  - Injection site pain [Unknown]
  - Skin discolouration [Unknown]
